FAERS Safety Report 9053839 (Version 2)
Quarter: 2013Q2

REPORT INFORMATION
  Report Type: Report from Study
  Country: JP (occurrence: JP)
  Receive Date: 20130207
  Receipt Date: 20130502
  Transmission Date: 20140414
  Serious: No
  Sender: FDA-Public Use
  Company Number: JP-GLAXOSMITHKLINE-B0865019A

PATIENT
  Sex: Female
  Weight: 35 kg

DRUGS (3)
  1. TYKERB [Suspect]
     Indication: BREAST CANCER
     Route: 048
     Dates: start: 20090811
  2. XELODA [Concomitant]
     Route: 048
     Dates: start: 20090811
  3. LOPEMIN [Concomitant]
     Indication: PROPHYLAXIS AGAINST DIARRHOEA
     Route: 048
     Dates: start: 20090811

REACTIONS (1)
  - No adverse event [Unknown]
